FAERS Safety Report 5626986-5 (Version None)
Quarter: 2008Q1

REPORT INFORMATION
  Report Type: 
  Country: None (occurrence: None)
  Receive Date: 20080130
  Receipt Date: 20070627
  Transmission Date: 20080703
  Serious: Yes (Other)
  Sender: FDA-Public Use
  Company Number: HQWYE838728JUN07

PATIENT
  Age: 69 Year
  Sex: Male
  Weight: 93.07 kg

DRUGS (2)
  1. CORDARONE [Suspect]
     Indication: ATRIAL FIBRILLATION
     Dosage: 200 MG 1X PER 1 DAY, ORAL
     Route: 048
     Dates: start: 20010601, end: 20011116
  2. ATENOLOL [Concomitant]

REACTIONS (1)
  - OPTIC ISCHAEMIC NEUROPATHY [None]
